FAERS Safety Report 12104267 (Version 2)
Quarter: 2016Q1

REPORT INFORMATION
  Report Type: Spontaneous
  Country: US (occurrence: US)
  Receive Date: 20160223
  Receipt Date: 20160307
  Transmission Date: 20160526
  Serious: Yes (Other)
  Sender: FDA-Public Use
  Company Number: US-ENDO PHARMACEUTICALS INC.-2016-001212

PATIENT
  Age: 4 Year
  Sex: Male
  Weight: 25.42 kg

DRUGS (7)
  1. PHENOBARBITAL ELIXIR 20MG/5ML [Suspect]
     Active Substance: PHENOBARBITAL
     Indication: EPILEPSY
     Route: 065
  2. ZYRTEC [Concomitant]
     Active Substance: CETIRIZINE HYDROCHLORIDE
     Indication: HYPERSENSITIVITY
     Route: 065
  3. ONFI [Concomitant]
     Active Substance: CLOBAZAM
     Indication: SEIZURE
     Route: 065
  4. CUVPOSA [Concomitant]
     Active Substance: GLYCOPYRROLATE
     Indication: SALIVARY HYPERSECRETION
  5. BANZEL [Concomitant]
     Active Substance: RUFINAMIDE
     Indication: SEIZURE
     Route: 065
     Dates: start: 2015
  6. CUVPOSA [Concomitant]
     Active Substance: GLYCOPYRROLATE
     Indication: DROOLING
     Route: 065
  7. LEVOTHYROXINE. [Concomitant]
     Active Substance: LEVOTHYROXINE
     Indication: SEIZURE
     Route: 065

REACTIONS (5)
  - Product taste abnormal [Not Recovered/Not Resolved]
  - Seizure [Not Recovered/Not Resolved]
  - Anticonvulsant drug level below therapeutic [Not Recovered/Not Resolved]
  - Condition aggravated [Not Recovered/Not Resolved]
  - Liquid product physical issue [Not Recovered/Not Resolved]

NARRATIVE: CASE EVENT DATE: 2016
